FAERS Safety Report 22620389 (Version 1)
Quarter: 2023Q2

REPORT INFORMATION
  Report Type: Spontaneous
  Country: US (occurrence: None)
  Receive Date: 20230616
  Receipt Date: 20230616
  Transmission Date: 20230722
  Serious: Yes (Life-Threatening)
  Sender: FDA-Public Use
  Company Number: None

PATIENT
  Age: 60 Year
  Sex: Female
  Weight: 63.9 kg

DRUGS (5)
  1. VIIBRYD [Suspect]
     Active Substance: VILAZODONE HYDROCHLORIDE
     Indication: Depression
     Dosage: OTHER QUANTITY : 30 CAPSULE(S);?FREQUENCY : DAILY;?
     Route: 048
     Dates: start: 20230610, end: 20230613
  2. LAMICTAL [Concomitant]
     Active Substance: LAMOTRIGINE
  3. VITAMIN D3 [Concomitant]
     Active Substance: CHOLECALCIFEROL
  4. HERBALS\TURMERIC [Concomitant]
     Active Substance: HERBALS\TURMERIC
  5. LYSINE 2000 MG [Concomitant]

REACTIONS (3)
  - Suicidal ideation [None]
  - Homicidal ideation [None]
  - Therapy cessation [None]

NARRATIVE: CASE EVENT DATE: 20230612
